FAERS Safety Report 6803698-3 (Version None)
Quarter: 2010Q2

REPORT INFORMATION
  Report Type: 
  Country: None (occurrence: None)
  Receive Date: 20100628
  Receipt Date: 20100617
  Transmission Date: 20101027
  Serious: Yes (Other)
  Sender: FDA-Public Use
  Company Number: US-SANOFI-AVENTIS-2010SA024026

PATIENT
  Age: 64 Year
  Sex: Female
  Weight: 107.04 kg

DRUGS (9)
  1. OPTICLICK [Suspect]
     Indication: TYPE 2 DIABETES MELLITUS
  2. LANTUS [Suspect]
     Indication: TYPE 2 DIABETES MELLITUS
     Dosage: DOSE:70 UNIT(S)
     Route: 058
  3. ANASTROZOLE [Concomitant]
  4. VITAMINS [Concomitant]
  5. COUMADIN [Concomitant]
  6. VYTORIN [Concomitant]
  7. LASIX [Concomitant]
  8. LISINOPRIL [Concomitant]
  9. PROZAC [Concomitant]

REACTIONS (3)
  - BREAST CANCER [None]
  - INJECTION SITE HAEMATOMA [None]
  - PRODUCT QUALITY ISSUE [None]
